FAERS Safety Report 9909212 (Version 1)
Quarter: 2014Q1

REPORT INFORMATION
  Report Type: Spontaneous
  Country: NL (occurrence: NL)
  Receive Date: 20140219
  Receipt Date: 20140219
  Transmission Date: 20141002
  Serious: Yes (Hospitalization)
  Sender: FDA-Public Use
  Company Number: NL-AMGEN-NLDSP2012085087

PATIENT
  Age: 52 Year
  Sex: Female

DRUGS (1)
  1. XGEVA [Suspect]
     Indication: PROPHYLAXIS
     Dosage: 120 MG, Q4WK
     Route: 058
     Dates: start: 20121005

REACTIONS (5)
  - Investigation [Recovered/Resolved]
  - Paraesthesia [Unknown]
  - Sensation of heaviness [Unknown]
  - Paraesthesia oral [Unknown]
  - Oral discomfort [Unknown]
